FAERS Safety Report 4706670-2 (Version None)
Quarter: 2005Q3

REPORT INFORMATION
  Report Type: 
  Country: None (occurrence: None)
  Receive Date: 20050705
  Receipt Date: 20050628
  Transmission Date: 20060218
  Serious: Yes (Other)
  Sender: FDA-Public Use
  Company Number: BR-ROCHE-409349

PATIENT
  Sex: Female

DRUGS (5)
  1. CELLCEPT [Suspect]
     Indication: IMMUNOSUPPRESSION
     Route: 048
     Dates: start: 20050615
  2. PEG-INTRON [Concomitant]
     Indication: HEPATITIS C
     Dates: start: 20050615
  3. RIBAVIRIN [Concomitant]
     Indication: HEPATITIS C
     Dates: start: 20050615
  4. PROGRAF [Concomitant]
     Indication: IMMUNOSUPPRESSION
     Dates: start: 20050615
  5. PREDNISONE [Concomitant]
     Indication: IMMUNOSUPPRESSION
     Dates: start: 20050615

REACTIONS (1)
  - RHABDOMYOLYSIS [None]
